FAERS Safety Report 4620027-4 (Version None)
Quarter: 2005Q1

REPORT INFORMATION
  Report Type: 
  Country: None (occurrence: None)
  Receive Date: 20050324
  Receipt Date: 20050311
  Transmission Date: 20050727
  Serious: Yes (Hospitalization)
  Sender: FDA-Public Use
  Company Number: 2005043338

PATIENT
  Age: 68 Year
  Sex: Female

DRUGS (13)
  1. ATORVASTATIN (ATORVASTATIN) [Suspect]
     Indication: HYPERLIPIDAEMIA
     Dosage: 20 MG (1 IN 1 D), ORAL
     Route: 048
  2. PANTOPRAZOLE SODIUM [Suspect]
     Indication: DUODENITIS
     Dosage: 40 MG (1 IN 1 D), ORAL
     Route: 048
  3. PANTOPRAZOLE SODIUM [Suspect]
     Indication: GASTRITIS
     Dosage: 40 MG (1 IN 1 D), ORAL
     Route: 048
  4. CLOPIDOGREL BISULFATE [Concomitant]
     Indication: ILL-DEFINED DISORDER
     Dosage: 75 MG (1 IN 1 D), ORAL
     Route: 048
  5. AMLODIPINE [Concomitant]
     Indication: ESSENTIAL HYPERTENSION
     Dosage: 5 MG (1 IN 1 D), ORAL
     Route: 048
  6. ASPIRIN [Concomitant]
  7. L-THROXIN (LEVOTHYROXINE SODIUM) [Concomitant]
  8. ENALAPRIL MALEATE [Concomitant]
  9. VASERETIC [Concomitant]
  10. METOPROLOL TARTRATE [Concomitant]
  11. SIMVASTATIN [Concomitant]
  12. AMLODIPINE [Concomitant]
  13. INSULIN [Concomitant]

REACTIONS (3)
  - ANTINUCLEAR ANTIBODY POSITIVE [None]
  - FATIGUE [None]
  - HEPATIC ENZYME INCREASED [None]
